FAERS Safety Report 5613189-3 (Version None)
Quarter: 2008Q1

REPORT INFORMATION
  Report Type: 
  Country: None (occurrence: None)
  Receive Date: 20080129
  Receipt Date: 20080122
  Transmission Date: 20080703
  Serious: Yes (Other)
  Sender: FDA-Public Use
  Company Number: GXKR2008AU00703

PATIENT
  Age: 69 Year
  Sex: Female
  Weight: 68 kg

DRUGS (11)
  1. TRAMADOL HCL [Suspect]
     Indication: ANAESTHESIA
     Dosage: 50 MG, ONCE/SINGLE, INTRAVENOUS
     Route: 042
  2. CABERGOLINE                CABERGOLINE) UNKNOWN [Suspect]
     Indication: RESTLESS LEGS SYNDROME
     Dosage: 2 MG/DAY,
  3. RAMIPRIL [Concomitant]
  4. PREGABALIN             (PREGABALIN) [Concomitant]
  5. PROPOFOL [Concomitant]
  6. ROCURONIUM                (ROCURONIUM) [Concomitant]
  7. SEVOFLURANE [Concomitant]
  8. CEFAZOLIN [Concomitant]
  9. ACETAMINOPHEN [Concomitant]
  10. FENTANYL [Concomitant]
  11. PARECOXIB            (PARECOXIB) [Concomitant]

REACTIONS (2)
  - DRUG INTERACTION [None]
  - HYPERTENSION [None]
